FAERS Safety Report 6370848-5 (Version None)
Quarter: 2009Q3

REPORT INFORMATION
  Report Type: 
  Country: None (occurrence: None)
  Receive Date: 20090923
  Receipt Date: 20070924
  Transmission Date: 20100115
  Serious: No
  Sender: FDA-Public Use
  Company Number: US-ASTRAZENECA-2006UW24828

PATIENT
  Age: 61 Year
  Sex: Female
  Weight: 81.6 kg

DRUGS (19)
  1. SEROQUEL [Suspect]
     Indication: DEPRESSION
     Route: 048
     Dates: start: 20040101, end: 20060101
  2. SEROQUEL [Suspect]
     Dosage: 25MG-100MG
     Route: 048
     Dates: start: 20041208
  3. ASPIRIN [Concomitant]
     Route: 048
  4. HYDROCODONE [Concomitant]
     Dosage: 5/25, 5/30
     Route: 048
  5. CLINDAMYCIN [Concomitant]
     Route: 048
  6. FUROSEMIDE [Concomitant]
     Route: 048
  7. BACLOFEN [Concomitant]
     Route: 048
  8. EFFEXOR [Concomitant]
     Route: 048
  9. GABAPENTIN [Concomitant]
     Route: 048
  10. NITROGLYCERIN [Concomitant]
     Route: 048
  11. SPIRONOLACTONE [Concomitant]
     Route: 048
  12. MORPHINE SULFATE INJ [Concomitant]
     Dosage: 2-10 MG/ML
     Route: 048
  13. NOVOLIN 70/30 [Concomitant]
     Dosage: 100 U
     Route: 065
  14. PEPCID [Concomitant]
     Dosage: 20 MG/2ML
     Route: 065
  15. LACTULOSE [Concomitant]
     Dosage: U.D 30ML
     Route: 065
  16. AMITRIPTYLINE [Concomitant]
     Dosage: 30M-50M
     Route: 048
  17. ATENOLOL [Concomitant]
     Route: 048
  18. TIZANIDINE HYDROCHLORIDE [Concomitant]
     Route: 048
  19. METOCLOPRAMIDE [Concomitant]
     Route: 048

REACTIONS (3)
  - DIABETES MELLITUS [None]
  - HAEMATOCHEZIA [None]
  - HAEMORRHOIDS [None]
